FAERS Safety Report 4696667-3 (Version None)
Quarter: 2005Q2

REPORT INFORMATION
  Report Type: 
  Country: None (occurrence: None)
  Receive Date: 20050620
  Receipt Date: 20050302
  Transmission Date: 20051028
  Serious: No
  Sender: FDA-Public Use
  Company Number: US-YAMANOUCHI-YPA20050100

PATIENT
  Age: 75 Year
  Sex: Female
  Weight: 56.6996 kg

DRUGS (4)
  1. VESICARE [Suspect]
     Indication: HYPERTONIC BLADDER
  2. VESICARE [Suspect]
     Indication: MICTURITION URGENCY
  3. ACTONEL [Concomitant]
  4. NEXIUM [Concomitant]

REACTIONS (1)
  - DRY MOUTH [None]
